FAERS Safety Report 8178416-X (Version None)
Quarter: 2012Q1

REPORT INFORMATION
  Report Type: 
  Country: None (occurrence: None)
  Receive Date: 20120301
  Receipt Date: 20120217
  Transmission Date: 20120608
  Serious: Yes (Hospitalization, Other)
  Sender: FDA-Public Use
  Company Number: FR-FRI-1000028676

PATIENT
  Sex: Female

DRUGS (5)
  1. ATARAX [Suspect]
     Indication: HYPERSENSITIVITY
     Route: 048
     Dates: start: 20110601, end: 20110808
  2. CLONAZEPAM [Concomitant]
     Route: 048
     Dates: start: 20110817, end: 20110824
  3. DESLORATADINE [Concomitant]
  4. XANAX [Suspect]
     Indication: ANXIETY
     Route: 048
     Dates: start: 20110601, end: 20110810
  5. ESCITALOPRAM [Suspect]
     Indication: DEPRESSION
     Route: 048
     Dates: start: 20110601, end: 20110808

REACTIONS (1)
  - NEUTROPENIA [None]
